FAERS Safety Report 9403741 (Version 9)
Quarter: 2014Q1

REPORT INFORMATION
  Report Type: Report from Study
  Country: GB (occurrence: GB)
  Receive Date: 20130717
  Receipt Date: 20140226
  Transmission Date: 20141002
  Serious: Yes (Death, Hospitalization)
  Sender: FDA-Public Use
  Company Number: GB-ROCHE-1241728

PATIENT
  Age: 50 Year
  Sex: Male
  Weight: 83 kg

DRUGS (9)
  1. TRASTUZUMAB EMTANSINE [Suspect]
     Indication: HER-2 POSITIVE GASTRIC CANCER
     Dosage: DATE OF LAST DOSE PRIOR TO SAE: 19/JUN/2013. LAST DOSE TAKEN: 204MG
     Route: 042
     Dates: start: 20130212
  2. AMOXICILLIN [Concomitant]
     Route: 065
     Dates: start: 20130627, end: 20130627
  3. CLARITHROMYCIN [Concomitant]
     Route: 065
     Dates: start: 20130627, end: 20130702
  4. LORAZEPAM [Concomitant]
     Indication: INSOMNIA
     Route: 065
     Dates: start: 20130629, end: 20130701
  5. ZOPICLONE [Concomitant]
     Indication: INSOMNIA
     Route: 065
     Dates: start: 20130703, end: 20130704
  6. PARACETAMOL [Concomitant]
     Indication: PYREXIA
     Route: 065
     Dates: start: 20130627, end: 20130628
  7. PARACETAMOL [Concomitant]
     Route: 065
     Dates: start: 20130703, end: 20130704
  8. OMEPRAZOLE [Concomitant]
     Indication: DUODENAL ULCER
     Route: 065
     Dates: start: 20130626, end: 20130704
  9. CO-AMOXICLAV [Concomitant]
     Indication: PYREXIA
     Route: 065
     Dates: start: 20130601, end: 20130610

REACTIONS (5)
  - Pneumonia aspiration [Fatal]
  - Infection [Recovered/Resolved]
  - Anaemia [Recovered/Resolved]
  - Small intestinal haemorrhage [Recovered/Resolved]
  - Pulmonary oedema [Not Recovered/Not Resolved]
